FAERS Safety Report 20554293 (Version 1)
Quarter: 2022Q1

REPORT INFORMATION
  Report Type: Spontaneous
  Country: CN (occurrence: CN)
  Receive Date: 20220304
  Receipt Date: 20220304
  Transmission Date: 20220423
  Serious: Yes (Other)
  Sender: FDA-Public Use
  Company Number: CN-AMGEN-CHNSP2022033798

PATIENT
  Age: 54 Year
  Sex: Female

DRUGS (3)
  1. REPATHA [Suspect]
     Active Substance: EVOLOCUMAB
     Indication: Hyperlipidaemia
     Dosage: 140 MILLIGRAM, Q2WK
     Route: 058
     Dates: start: 20220125
  2. ASPIRIN [Concomitant]
     Active Substance: ASPIRIN
     Dosage: UNK
  3. EZETIMIBE [Concomitant]
     Active Substance: EZETIMIBE
     Dosage: UNK

REACTIONS (2)
  - Intestinal polyp [Unknown]
  - Device difficult to use [Unknown]

NARRATIVE: CASE EVENT DATE: 20220223
